FAERS Safety Report 8059018-2 (Version None)
Quarter: 2012Q1

REPORT INFORMATION
  Report Type: 
  Country: None (occurrence: None)
  Receive Date: 20120120
  Receipt Date: 20110406
  Transmission Date: 20120608
  Serious: No
  Sender: FDA-Public Use
  Company Number: US-BAUSCH-2011BL002278

PATIENT
  Age: 91 Year
  Sex: Female

DRUGS (3)
  1. ALAWAY [Suspect]
     Indication: DRY EYE
     Route: 048
     Dates: start: 20110405, end: 20110405
  2. ALAWAY [Suspect]
     Indication: OFF LABEL USE
     Route: 048
     Dates: start: 20110405, end: 20110405
  3. MULTI-VITAMINS [Concomitant]

REACTIONS (1)
  - EYE IRRITATION [None]
